FAERS Safety Report 9903226 (Version 1)
Quarter: 2014Q1

REPORT INFORMATION
  Report Type: Spontaneous
  Country: US (occurrence: US)
  Receive Date: 20140217
  Receipt Date: 20140217
  Transmission Date: 20141002
  Serious: No
  Sender: FDA-Public Use
  Company Number: US-ASTRAZENECA-2013SE91059

PATIENT
  Age: 83 Year
  Sex: Female

DRUGS (8)
  1. ATENOLOL [Suspect]
     Route: 065
  2. PRILOSEC [Suspect]
     Route: 048
  3. BRILINTA [Suspect]
     Indication: PERCUTANEOUS CORONARY INTERVENTION
     Dosage: LOADING DOSE
     Route: 048
     Dates: start: 201312, end: 201312
  4. BRILINTA [Suspect]
     Indication: PERCUTANEOUS CORONARY INTERVENTION
     Dosage: MAINTENANCE DOSE
     Route: 048
     Dates: start: 201312, end: 201312
  5. SIMVASTATIN [Concomitant]
  6. ADVAIR [Concomitant]
  7. ALBUTEROL [Concomitant]
  8. PLAVIX [Concomitant]

REACTIONS (1)
  - Dyspnoea [Unknown]
